FAERS Safety Report 8025068-5 (Version None)
Quarter: 2012Q1

REPORT INFORMATION
  Report Type: 
  Country: None (occurrence: None)
  Receive Date: 20120105
  Receipt Date: 20111221
  Transmission Date: 20120608
  Serious: Yes (Other)
  Sender: FDA-Public Use
  Company Number: FR-MERCK-1112FRA00100

PATIENT
  Age: 78 Year
  Sex: Female

DRUGS (3)
  1. ALBUTEROL [Concomitant]
     Route: 065
  2. CELECOXIB [Concomitant]
     Route: 048
  3. SINGULAIR [Suspect]
     Route: 048

REACTIONS (1)
  - ALLERGIC GRANULOMATOUS ANGIITIS [None]
